FAERS Safety Report 15128767 (Version 3)
Quarter: 2018Q3

REPORT INFORMATION
  Report Type: Spontaneous
  Country: AU (occurrence: AU)
  Receive Date: 20180711
  Receipt Date: 20180924
  Transmission Date: 20181010
  Serious: Yes (Death, Hospitalization, Other)
  Sender: FDA-Public Use
  Company Number: AU-B.I. PHARMACEUTICALS,INC./RIDGEFIELD-2018-BI-034713

PATIENT
  Age: 71 Year
  Sex: Male

DRUGS (1)
  1. PRAXBIND [Suspect]
     Active Substance: IDARUCIZUMAB
     Indication: PROCOAGULANT THERAPY
     Route: 065

REACTIONS (6)
  - Haemodynamic instability [Unknown]
  - Drug ineffective [Unknown]
  - Death [Fatal]
  - Coagulopathy [Unknown]
  - Tubulointerstitial nephritis [Recovered/Resolved]
  - Anticoagulation drug level increased [Unknown]
